FAERS Safety Report 9019954 (Version 1)
Quarter: 2013Q1

REPORT INFORMATION
  Report Type: Spontaneous
  Country: US (occurrence: US)
  Receive Date: 20130119
  Receipt Date: 20130119
  Transmission Date: 20140127
  Serious: No
  Sender: FDA-Public Use
  Company Number: US-ALLERGAN-1211908US

PATIENT
  Sex: Female

DRUGS (12)
  1. BOTOX COSMETIC [Suspect]
     Indication: SKIN WRINKLING
     Dosage: 30 UNITS, SINGLE
     Route: 030
     Dates: start: 20120710, end: 20120710
  2. BOTOX COSMETIC [Suspect]
     Indication: SKIN WRINKLING
  3. PENICILLIN                         /00000901/ [Concomitant]
     Indication: CYTOMEGALOVIRUS INFECTION
     Dosage: UNK
  4. METRONIDAZOLE [Concomitant]
     Indication: FUNGAL INFECTION
     Dosage: UNK
  5. CELEBREX [Concomitant]
     Indication: FIBROMYALGIA
     Dosage: UNK
     Route: 048
  6. AMBIEN [Concomitant]
     Indication: INSOMNIA
     Dosage: UNK UNK, QHS
     Route: 048
  7. CRESTOR                            /01588601/ [Concomitant]
     Indication: HYPERCHOLESTEROLAEMIA
     Dosage: UNK
     Route: 048
  8. ESTRACE [Concomitant]
     Indication: HORMONE REPLACEMENT THERAPY
     Dosage: UNK
  9. BACLOFEN [Concomitant]
     Indication: FIBROMYALGIA
     Dosage: UNK
     Route: 048
  10. NEXIUM                             /01479302/ [Concomitant]
     Indication: GASTROOESOPHAGEAL REFLUX DISEASE
     Dosage: UNK
     Route: 048
  11. BUMETANIDE [Concomitant]
     Indication: DIURETIC THERAPY
     Dosage: UNK UNK, PRN
     Route: 048
  12. TIZANIDINE [Concomitant]
     Indication: FIBROMYALGIA
     Dosage: UNK
     Route: 048

REACTIONS (1)
  - Drug ineffective [Unknown]
